FAERS Safety Report 7519039-2 (Version None)
Quarter: 2011Q2

REPORT INFORMATION
  Report Type: 
  Country: None (occurrence: None)
  Receive Date: 20110602
  Receipt Date: 20110518
  Transmission Date: 20111010
  Serious: Yes (Hospitalization)
  Sender: FDA-Public Use
  Company Number: US-JNJFOC-20110509118

PATIENT
  Sex: Female

DRUGS (18)
  1. COUMADIN [Concomitant]
     Route: 048
  2. REMICADE [Suspect]
     Indication: INFLAMMATORY BOWEL DISEASE
     Route: 042
  3. NORVASC [Concomitant]
     Route: 048
  4. METHOTREXATE [Concomitant]
  5. ACTONEL [Concomitant]
  6. FERROUS SULFATE TAB [Concomitant]
  7. METOPROLOL TARTRATE [Concomitant]
  8. NORVASC [Concomitant]
     Route: 048
  9. NEURONTIN [Concomitant]
  10. NEURONTIN [Concomitant]
  11. COUMADIN [Concomitant]
     Route: 048
  12. MULTI-VITAMINS [Concomitant]
  13. PRILOSEC [Concomitant]
  14. TRAZODONE HCL [Concomitant]
  15. EFFEXOR [Concomitant]
  16. VICODIN [Concomitant]
  17. FOLATE [Concomitant]
  18. METOPROLOL TARTRATE [Concomitant]

REACTIONS (4)
  - INTERNATIONAL NORMALISED RATIO INCREASED [None]
  - SMALL INTESTINAL OBSTRUCTION [None]
  - PELVIC ABSCESS [None]
  - RESPIRATORY DISORDER [None]
